FAERS Safety Report 23254335 (Version 2)
Quarter: 2023Q4

REPORT INFORMATION
  Report Type: Spontaneous
  Country: JP (occurrence: JP)
  Receive Date: 20231202
  Receipt Date: 20231213
  Transmission Date: 20240109
  Serious: Yes (Other)
  Sender: FDA-Public Use
  Company Number: JP-ASTELLAS-2023JP013076

PATIENT
  Age: 75 Year
  Sex: Female

DRUGS (1)
  1. LINZESS [Suspect]
     Active Substance: LINACLOTIDE
     Indication: Constipation
     Dosage: UNKNOWN FREQUENCY
     Route: 048
     Dates: start: 20230622

REACTIONS (2)
  - Interstitial lung disease [Not Recovered/Not Resolved]
  - Allergy to animal [Not Recovered/Not Resolved]

NARRATIVE: CASE EVENT DATE: 20231012
